FAERS Safety Report 8801971 (Version 2)
Quarter: 2012Q4

REPORT INFORMATION
  Report Type: 
  Country: PE (occurrence: PE)
  Receive Date: 20120921
  Receipt Date: 20120928
  Transmission Date: 20130627
  Serious: Yes (Death, Other)
  Sender: FDA-Public Use
  Company Number: PE-PFIZER INC-2012229867

PATIENT
  Age: 52 Year
  Sex: Male

DRUGS (4)
  1. XALATAN [Suspect]
     Indication: PROPHYLAXIS
     Dosage: UNK
     Route: 047
     Dates: start: 2009, end: 20120527
  2. WARFARIN [Concomitant]
     Dosage: UNK
     Route: 048
  3. LOSARTAN [Concomitant]
     Dosage: UNK
     Route: 048
  4. DILTIAZEM [Concomitant]
     Dosage: UNK
     Route: 048

REACTIONS (1)
  - Myocardial infarction [Fatal]
